FAERS Safety Report 9186002 (Version 1)
Quarter: 2013Q1

REPORT INFORMATION
  Report Type: Spontaneous
  Country: MT (occurrence: MT)
  Receive Date: 20130325
  Receipt Date: 20130325
  Transmission Date: 20140127
  Serious: Yes (Other)
  Sender: FDA-Public Use
  Company Number: MT-ASTRAZENECA-2013SE16899

PATIENT
  Age: 73 Year
  Sex: Female

DRUGS (2)
  1. CRESTOR [Suspect]
     Indication: DYSLIPIDAEMIA
     Route: 048
     Dates: start: 201109, end: 201207
  2. ANTIHYPERTENSIVES [Concomitant]

REACTIONS (2)
  - Lichen planus [Unknown]
  - Rash [Unknown]
